FAERS Safety Report 4888135-0 (Version None)
Quarter: 2006Q1

REPORT INFORMATION
  Report Type: 
  Country: None (occurrence: None)
  Receive Date: 20060123
  Receipt Date: 20060113
  Transmission Date: 20060701
  Serious: Yes (Hospitalization)
  Sender: FDA-Public Use
  Company Number: NO-MERCK-0601NOR00016

PATIENT
  Age: 66 Year
  Sex: Female

DRUGS (8)
  1. VIOXX [Suspect]
     Indication: GOUTY ARTHRITIS
     Route: 048
     Dates: start: 20010101, end: 20020401
  2. ACETAMINOPHEN [Concomitant]
     Indication: ARTHRITIS
     Route: 048
     Dates: start: 20010101
  3. ACETAMINOPHEN AND CODEINE PHOSPHATE [Concomitant]
     Indication: ARTHRITIS
     Route: 048
     Dates: start: 20010101
  4. FOSAMAX [Concomitant]
     Indication: OSTEOPOROSIS
     Route: 048
     Dates: start: 20010101
  5. FLUTICASONE PROPIONATE [Concomitant]
     Indication: ASTHMA
     Route: 055
     Dates: start: 19980101
  6. PREDNISOLONE [Concomitant]
     Indication: ASTHMA
     Route: 048
     Dates: start: 19980101
  7. CALCIUM CARBONATE AND CHOLECALCIFEROL [Concomitant]
     Indication: OSTEOPOROSIS
     Route: 048
     Dates: start: 20010101
  8. ASPIRIN AND MAGNESIUM OXIDE [Concomitant]
     Indication: ARTHRITIS
     Route: 048
     Dates: start: 20010101

REACTIONS (2)
  - CORONARY ARTERY STENOSIS [None]
  - NON-CARDIAC CHEST PAIN [None]
